FAERS Safety Report 4743447-6 (Version None)
Quarter: 2005Q3

REPORT INFORMATION
  Report Type: 
  Country: None (occurrence: None)
  Receive Date: 20050810
  Receipt Date: 20050810
  Transmission Date: 20060218
  Serious: Yes (Hospitalization, Other)
  Sender: FDA-Public Use
  Company Number: None

PATIENT
  Age: 67 Year
  Sex: Male
  Weight: 67.8 kg

DRUGS (11)
  1. TAXOL [Suspect]
     Indication: CORONARY ARTERY DISEASE
     Dosage: JULY 2004 1 INTRACORON
     Route: 022
     Dates: start: 20040701, end: 20050809
  2. ALTACE [Concomitant]
  3. GLYBURIDE [Concomitant]
  4. AVANDIA [Concomitant]
  5. COREG [Concomitant]
  6. ASPIRIN [Concomitant]
  7. IRON [Concomitant]
  8. PRILOSEC [Concomitant]
  9. PREVACID [Concomitant]
  10. VITAMINS [Concomitant]
  11. GLUCOSAMINE/CHONDROITIN [Concomitant]

REACTIONS (4)
  - ABDOMINAL MASS [None]
  - ANAEMIA [None]
  - DIARRHOEA [None]
  - MESENTERIC PANNICULITIS [None]
